FAERS Safety Report 7803664-5 (Version None)
Quarter: 2011Q4

REPORT INFORMATION
  Report Type: 
  Country: None (occurrence: None)
  Receive Date: 20111010
  Receipt Date: 20110930
  Transmission Date: 20120403
  Serious: Yes (Hospitalization)
  Sender: FDA-Public Use
  Company Number: US-BIOGENIDEC-2011BI032117

PATIENT
  Sex: Female

DRUGS (1)
  1. TYSABRI [Suspect]
     Indication: MULTIPLE SCLEROSIS
     Route: 042
     Dates: start: 20100118

REACTIONS (5)
  - INCISION SITE PAIN [None]
  - AIRWAY COMPLICATION OF ANAESTHESIA [None]
  - FATIGUE [None]
  - OPTIC NEURITIS [None]
  - TREMOR [None]
